FAERS Safety Report 11693578 (Version 3)
Quarter: 2016Q2

REPORT INFORMATION
  Report Type: Spontaneous
  Country: US (occurrence: US)
  Receive Date: 20151103
  Receipt Date: 20160512
  Transmission Date: 20160815
  Serious: No
  Sender: FDA-Public Use
  Company Number: US-PFIZER INC-2015355157

PATIENT
  Age: 63 Year
  Sex: Female

DRUGS (1)
  1. SUTENT [Suspect]
     Active Substance: SUNITINIB MALATE
     Indication: RENAL CANCER
     Dosage: 50 MG, CYCLIC, 1 CAPSULE DAILY FOR 28 DAYS OF A 42 DAY CYCLE
     Route: 048
     Dates: start: 20141023

REACTIONS (5)
  - Erythema [Recovered/Resolved]
  - Peripheral swelling [Unknown]
  - Drug dose omission [Unknown]
  - Blister [Recovered/Resolved]
  - Fatigue [Unknown]
